FAERS Safety Report 11426896 (Version 2)
Quarter: 2015Q3

REPORT INFORMATION
  Report Type: Spontaneous
  Country: US (occurrence: US)
  Receive Date: 20150821
  Receipt Date: 20150916
  Transmission Date: 20151125
  Serious: No
  Sender: FDA-Public Use
  Company Number: US-ELI_LILLY_AND_COMPANY-US201309000419

PATIENT
  Age: 80 Year
  Sex: Female

DRUGS (2)
  1. HUMALOG MIX75/25 [Suspect]
     Active Substance: INSULIN LISPRO
     Indication: DIABETES MELLITUS
     Dosage: UNK, PRN
     Dates: start: 20130829
  2. INSULIN HUMAN [Suspect]
     Active Substance: INSULIN HUMAN

REACTIONS (14)
  - Feeling abnormal [Unknown]
  - Malaise [Unknown]
  - Drug dose omission [Unknown]
  - Vision blurred [Unknown]
  - Crying [Unknown]
  - Pain [Unknown]
  - Blood glucose decreased [Unknown]
  - Stress [Unknown]
  - Hypersensitivity [Unknown]
  - Confusional state [Unknown]
  - Heart rate increased [Unknown]
  - Back pain [Unknown]
  - Nausea [Unknown]
  - Confusional state [Unknown]

NARRATIVE: CASE EVENT DATE: 20130829
